FAERS Safety Report 8343451-5 (Version None)
Quarter: 2012Q2

REPORT INFORMATION
  Report Type: 
  Country: None (occurrence: None)
  Receive Date: 20120508
  Receipt Date: 20120503
  Transmission Date: 20120825
  Serious: Yes (Hospitalization, Other)
  Sender: FDA-Public Use
  Company Number: PHHY2012BR017879

PATIENT
  Sex: Female

DRUGS (7)
  1. LESCOL XL [Suspect]
     Dosage: 80 MG, 1 TAB A DAY
     Route: 048
  2. FENOFIBRATE [Concomitant]
     Dosage: 200 MG, UNK
  3. RECONTER [Concomitant]
     Indication: DEPRESSION
     Dosage: 10 MG, UNK
  4. ATENOLOL [Concomitant]
     Indication: BLOOD PRESSURE
  5. CHLORTHALIDONE [Concomitant]
     Dosage: 12.5 MG, UNK
  6. OMEPRAZOLE [Concomitant]
     Dosage: UNK
  7. AMIODARONE HYDROCHLORIDE [Concomitant]
     Dosage: 200 MG, UNK

REACTIONS (2)
  - DEPRESSION [None]
  - CEREBROVASCULAR ACCIDENT [None]
